FAERS Safety Report 10016375 (Version 4)
Quarter: 2014Q1

REPORT INFORMATION
  Report Type: Report from Study
  Country: AU (occurrence: AU)
  Receive Date: 20140317
  Receipt Date: 20140331
  Transmission Date: 20141002
  Serious: Yes (Hospitalization, Disabling, Other)
  Sender: FDA-Public Use
  Company Number: PHHY2014AU003718

PATIENT
  Sex: Male
  Weight: 98 kg

DRUGS (3)
  1. SANDOSTATIN LAR [Suspect]
     Indication: CARCINOID SYNDROME
     Dosage: 30 MG, UNK
     Route: 030
     Dates: end: 20140110
  2. SANDOSTATIN LAR [Suspect]
     Dosage: 30 MG, UNK
     Route: 030
     Dates: start: 20140314
  3. SANDOSTATIN LAR [Suspect]
     Dosage: 30 MG, UNK
     Route: 030

REACTIONS (5)
  - Malaise [Recovering/Resolving]
  - Malignant neoplasm progression [Unknown]
  - Back pain [Not Recovered/Not Resolved]
  - Musculoskeletal pain [Not Recovered/Not Resolved]
  - Serum serotonin increased [Not Recovered/Not Resolved]
